FAERS Safety Report 10028760 (Version 1)
Quarter: 2014Q1

REPORT INFORMATION
  Report Type: Spontaneous
  Country: OM (occurrence: OM)
  Receive Date: 20140321
  Receipt Date: 20140321
  Transmission Date: 20141002
  Serious: Yes (Other)
  Sender: FDA-Public Use
  Company Number: OM-ABBVIE-14P-123-1213430-00

PATIENT
  Age: 42 Year
  Sex: 0

DRUGS (1)
  1. HUMIRA [Suspect]
     Indication: COLITIS ULCERATIVE

REACTIONS (1)
  - Neutropenia [Unknown]
